FAERS Safety Report 24814018 (Version 1)
Quarter: 2025Q1

REPORT INFORMATION
  Report Type: Spontaneous
  Country: US (occurrence: US)
  Receive Date: 20250107
  Receipt Date: 20250107
  Transmission Date: 20250408
  Serious: Yes (Other)
  Sender: BRISTOL-MYERS SQUIBB COMPANY
  Company Number: US-BRISTOL-MYERS SQUIBB COMPANY-2025-001120

PATIENT
  Age: 85 Year
  Sex: Male

DRUGS (1)
  1. LENALIDOMIDE [Suspect]
     Active Substance: LENALIDOMIDE
     Indication: Myelodysplastic syndrome
     Dosage: TAKE 1 WHOLE CAPSULE BY MOUTH WITH WATER WITH OR WITHOUT FOOD AT SAME TIME DAILY ON DAYS 1-21 OF 28
     Route: 048
     Dates: start: 20241218

REACTIONS (2)
  - Pulmonary oedema [Not Recovered/Not Resolved]
  - Rash [Not Recovered/Not Resolved]
